FAERS Safety Report 18907325 (Version 1)
Quarter: 2021Q1

REPORT INFORMATION
  Report Type: Spontaneous
  Country: CH (occurrence: CH)
  Receive Date: 20210218
  Receipt Date: 20210218
  Transmission Date: 20210420
  Serious: Yes (Hospitalization, Other)
  Sender: FDA-Public Use
  Company Number: CH-TEVA-2021-CH-1880192

PATIENT
  Age: 33 Year
  Sex: Male

DRUGS (10)
  1. ABILIFY [Suspect]
     Active Substance: ARIPIPRAZOLE
     Dosage: 300 MG THEN 400 MG
     Route: 030
     Dates: start: 201906, end: 20210107
  2. IRFEN [Concomitant]
     Active Substance: IBUPROFEN
     Dosage: IN TOTAL
     Route: 065
     Dates: start: 202101, end: 202101
  3. AUGMENTIN [Suspect]
     Active Substance: AMOXICILLIN\CLAVULANATE POTASSIUM
     Indication: PNEUMONIA
     Dosage: 1875 MILLIGRAM DAILY;
     Route: 065
     Dates: start: 20201214, end: 20201220
  4. PARACETAMOL [Concomitant]
     Active Substance: ACETAMINOPHEN
     Dosage: 4 GRAM DAILY; AS NECESSARY
     Route: 065
     Dates: start: 202012, end: 202101
  5. HALDOL [Suspect]
     Active Substance: HALOPERIDOL
     Dosage: 4 MILLIGRAM DAILY;
     Route: 065
     Dates: start: 202011, end: 20210107
  6. NOZINAN [Suspect]
     Active Substance: LEVOMEPROMAZINE
     Dosage: AS NECESSARY
     Route: 065
     Dates: start: 202011, end: 202101
  7. INEGY [Concomitant]
     Active Substance: EZETIMIBE\SIMVASTATIN
     Route: 065
     Dates: end: 202101
  8. TRITTICO [Suspect]
     Active Substance: TRAZODONE HYDROCHLORIDE
     Dosage: 300 MILLIGRAM DAILY;
     Route: 065
     Dates: end: 202101
  9. TOPAMAX [Suspect]
     Active Substance: TOPIRAMATE
     Dosage: 100 MILLIGRAM DAILY;
     Route: 065
     Dates: end: 202101
  10. ANTABUSE [Suspect]
     Active Substance: DISULFIRAM
     Dosage: 200 MILLIGRAM DAILY;
     Route: 065
     Dates: end: 202101

REACTIONS (2)
  - Bradycardia [Recovered/Resolved]
  - Mixed liver injury [Not Recovered/Not Resolved]

NARRATIVE: CASE EVENT DATE: 202101
